FAERS Safety Report 21716377 (Version 1)
Quarter: 2022Q4

REPORT INFORMATION
  Report Type: Spontaneous
  Country: CN (occurrence: CN)
  Receive Date: 20221212
  Receipt Date: 20221212
  Transmission Date: 20230113
  Serious: Yes (Life-Threatening, Hospitalization, Other)
  Sender: FDA-Public Use
  Company Number: CN-009507513-2212CHN003469

PATIENT
  Age: 63 Year
  Sex: Male
  Weight: 59 kg

DRUGS (4)
  1. KEYTRUDA [Suspect]
     Active Substance: PEMBROLIZUMAB
     Indication: Lung adenocarcinoma stage IV
     Dosage: 200 MG, Q3W
     Route: 041
     Dates: start: 20221027, end: 20221027
  2. PEMETREXED DISODIUM [Suspect]
     Active Substance: PEMETREXED DISODIUM
     Indication: Lung adenocarcinoma stage IV
     Dosage: 0.8 G, Q3W
     Route: 041
     Dates: start: 20221027, end: 20221027
  3. CISPLATIN [Suspect]
     Active Substance: CISPLATIN
     Indication: Lung adenocarcinoma stage IV
     Dosage: 60 MG, Q3W
     Route: 041
     Dates: start: 20221027, end: 20221027
  4. CISPLATIN [Suspect]
     Active Substance: CISPLATIN
     Dosage: 60 MG, Q3W
     Route: 041
     Dates: start: 20221028, end: 20221028

REACTIONS (3)
  - Platelet count decreased [Recovering/Resolving]
  - Haemoglobin decreased [Unknown]
  - Haemoptysis [Unknown]

NARRATIVE: CASE EVENT DATE: 20221107
